FAERS Safety Report 23437569 (Version 4)
Quarter: 2024Q1

REPORT INFORMATION
  Report Type: Spontaneous
  Country: ES (occurrence: ES)
  Receive Date: 20240124
  Receipt Date: 20240308
  Transmission Date: 20240410
  Serious: Yes (Life-Threatening, Hospitalization)
  Sender: FDA-Public Use
  Company Number: ES-GE HEALTHCARE-2024CSU000535

PATIENT
  Age: 69 Year
  Sex: Female

DRUGS (5)
  1. OMNIPAQUE [Suspect]
     Active Substance: IOHEXOL
     Indication: Computerised tomogram thorax
     Dosage: 2 ML/SEC, ONCE
     Route: 042
     Dates: start: 20240116, end: 20240116
  2. OMNIPAQUE [Suspect]
     Active Substance: IOHEXOL
     Dosage: UNK UNK, TOTAL
     Route: 065
     Dates: start: 20240124, end: 20240124
  3. LEVOTHYROXINE SODIUM [Concomitant]
     Active Substance: LEVOTHYROXINE SODIUM
     Indication: Hypothyroidism
     Route: 065
  4. BISOPROLOL FUMARATE [Concomitant]
     Active Substance: BISOPROLOL FUMARATE
     Indication: Arrhythmia
     Route: 065
  5. SIMVASTATIN [Concomitant]
     Active Substance: SIMVASTATIN
     Route: 065

REACTIONS (4)
  - Cardio-respiratory arrest [Recovered/Resolved]
  - Syncope [Recovered/Resolved]
  - Inadvertent injection air bubble [Recovered/Resolved]
  - Drug delivery system malfunction [Recovered/Resolved]

NARRATIVE: CASE EVENT DATE: 20240116
